FAERS Safety Report 24316466 (Version 2)
Quarter: 2024Q3

REPORT INFORMATION
  Report Type: Spontaneous
  Country: CN (occurrence: CN)
  Receive Date: 20240913
  Receipt Date: 20240920
  Transmission Date: 20241017
  Serious: Yes (Life-Threatening, Hospitalization, Other)
  Sender: USV PRIVATE
  Company Number: CN-USV-002875

PATIENT
  Age: 58 Year
  Sex: Female

DRUGS (1)
  1. ZOLEDRONIC ACID [Suspect]
     Active Substance: ZOLEDRONIC ACID
     Indication: Osteoporosis
     Dates: start: 20230823

REACTIONS (7)
  - Gastrointestinal inflammation [Unknown]
  - Sepsis [Recovered/Resolved]
  - Chronic gastritis [Recovering/Resolving]
  - Septic shock [Recovering/Resolving]
  - Syncope [Recovered/Resolved]
  - Acute kidney injury [Recovering/Resolving]
  - Oesophagitis [Recovering/Resolving]

NARRATIVE: CASE EVENT DATE: 20230825
